FAERS Safety Report 7119173-5 (Version None)
Quarter: 2010Q4

REPORT INFORMATION
  Report Type: 
  Country: None (occurrence: None)
  Receive Date: 20101028
  Receipt Date: 20100225
  Transmission Date: 20110411
  Serious: Yes (Hospitalization, Other)
  Sender: FDA-Public Use
  Company Number: 1713747-2010-00015

PATIENT
  Sex: Male

DRUGS (1)
  1. DELFLEX W/ DEXTROSE 4.25% [Suspect]
     Indication: RENAL FAILURE CHRONIC
     Dosage: INTRAPERITONEALLY
     Route: 033
     Dates: start: 20100221

REACTIONS (3)
  - HOSPITALISATION [None]
  - PAIN [None]
  - PERITONITIS [None]
